FAERS Safety Report 7133380-7 (Version None)
Quarter: 2010Q4

REPORT INFORMATION
  Report Type: 
  Country: None (occurrence: None)
  Receive Date: 20101117
  Receipt Date: 20101102
  Transmission Date: 20110411
  Serious: No
  Sender: FDA-Public Use
  Company Number: 2010-00972

PATIENT
  Sex: Female

DRUGS (3)
  1. ZICAM COLD REMEDY NASAL GEL [Suspect]
     Dosage: AS DIRECTED
  2. ZICAM COLD REMEDY GEL SWABS [Suspect]
     Dosage: AS DIRECTED
  3. ZICAM ALLERGY RELIEF NASAL GEL [Suspect]
     Dosage: AS DIRECTED

REACTIONS (2)
  - ANOSMIA [None]
  - DYSGEUSIA [None]
